FAERS Safety Report 16605632 (Version 1)
Quarter: 2019Q3

REPORT INFORMATION
  Report Type: Spontaneous
  Country: US (occurrence: US)
  Receive Date: 20190721
  Receipt Date: 20190721
  Transmission Date: 20191004
  Serious: No
  Sender: FDA-Public Use
  Company Number: US-GALDERMA-US19000173

PATIENT
  Sex: Female

DRUGS (4)
  1. PROACTIV?MD BALANCING TONER [Concomitant]
     Indication: ACNE
     Route: 061
  2. PROACTIV MD DAILY OIL CONTROL SPF 30 [Suspect]
     Active Substance: AVOBENZONE\OCTISALATE\OCTOCRYLENE
     Indication: ACNE
     Route: 061
  3. PROACTIV MD ADAPALENE ACNE TREATMENT [Suspect]
     Active Substance: ADAPALENE
     Indication: ACNE
     Dosage: 0.1%
     Route: 061
  4. PROACTIV?MD DEEP CLEANSING FACE?WASH [Concomitant]
     Indication: ACNE
     Route: 061

REACTIONS (3)
  - Skin burning sensation [Unknown]
  - Acne [Recovering/Resolving]
  - Dry skin [Unknown]
